FAERS Safety Report 6758697-7 (Version None)
Quarter: 2010Q2

REPORT INFORMATION
  Report Type: 
  Country: None (occurrence: None)
  Receive Date: 20100607
  Receipt Date: 20100601
  Transmission Date: 20101027
  Serious: Yes (Hospitalization)
  Sender: FDA-Public Use
  Company Number: US-RB-010510-10

PATIENT
  Age: 72 Year
  Sex: Female

DRUGS (6)
  1. SUBOXONE [Suspect]
     Route: 060
     Dates: start: 20080101, end: 20100501
  2. SUBOXONE [Suspect]
     Indication: PAIN
     Route: 060
     Dates: start: 20100502, end: 20100506
  3. SUBOXONE [Suspect]
     Route: 060
     Dates: start: 20070101, end: 20080101
  4. LOPRESSOR [Concomitant]
     Dosage: UNKNOWN DOSING DETAILS
     Route: 065
  5. SYNTHROID [Concomitant]
     Indication: HYPOTHYROIDISM
     Dosage: UNKNOWN  DOSING DETAILS
     Route: 065
  6. ASPIRIN [Concomitant]
     Route: 065

REACTIONS (5)
  - BLOOD PRESSURE INCREASED [None]
  - DRUG WITHDRAWAL SYNDROME [None]
  - HEMIPARESIS [None]
  - INSOMNIA [None]
  - LOSS OF CONSCIOUSNESS [None]
